FAERS Safety Report 6987168-8 (Version None)
Quarter: 2010Q3

REPORT INFORMATION
  Report Type: 
  Country: None (occurrence: None)
  Receive Date: 20100916
  Receipt Date: 20100907
  Transmission Date: 20110219
  Serious: Yes (Other)
  Sender: FDA-Public Use
  Company Number: ZA-PFIZER INC-2010112595

PATIENT
  Age: 45 Year
  Sex: Male

DRUGS (1)
  1. ASPAVOR [Suspect]
     Dosage: 10 MG, 1X/DAY
     Route: 048

REACTIONS (2)
  - DEPRESSION [None]
  - LIBIDO DECREASED [None]
